FAERS Safety Report 5112751-4 (Version None)
Quarter: 2006Q3

REPORT INFORMATION
  Report Type: 
  Country: None (occurrence: None)
  Receive Date: 20060919
  Receipt Date: 20060915
  Transmission Date: 20061208
  Serious: Yes (Disabling)
  Sender: FDA-Public Use
  Company Number: 2006S1000093

PATIENT
  Age: 4 Day
  Sex: Male

DRUGS (10)
  1. NITRIC OXIDE [Suspect]
     Indication: LUNG DISORDER
     Dosage: 5 PPM; INT_GAS; INH; CONT INH
     Route: 055
     Dates: start: 20060505
  2. NITRIC OXIDE [Suspect]
     Indication: PROPHYLAXIS
     Dosage: 5 PPM; INT_GAS; INH; CONT INH
     Route: 055
     Dates: start: 20060505
  3. FENTANYL [Concomitant]
  4. PLASMA [Concomitant]
  5. CAFFEINE (CAFFEINE) [Concomitant]
  6. CAFFEINE (CAFFEINE) [Concomitant]
  7. CEFTAZIDIME (CEFTAZIDIME) [Concomitant]
  8. VANCOMYCIN [Concomitant]
  9. SODIUM BICARBONATE IN PLASTIC CONTAINER [Concomitant]
  10. PHENOBARBITAL TAB [Concomitant]

REACTIONS (9)
  - BLOOD PRESSURE INCREASED [None]
  - COAGULOPATHY [None]
  - HAEMOGLOBIN DECREASED [None]
  - INTRAVENTRICULAR HAEMORRHAGE NEONATAL [None]
  - IRRITABILITY [None]
  - LEUKOPENIA NEONATAL [None]
  - NEONATAL DISORDER [None]
  - PALLOR [None]
  - SEPSIS NEONATAL [None]
